FAERS Safety Report 25458112 (Version 1)
Quarter: 2025Q2

REPORT INFORMATION
  Report Type: Spontaneous
  Country: CO (occurrence: CO)
  Receive Date: 20250620
  Receipt Date: 20250620
  Transmission Date: 20250716
  Serious: Yes (Other)
  Sender: CHIESI
  Company Number: CO-CHIESI-2025CHF03982

PATIENT
  Age: 46 Year
  Sex: Female

DRUGS (1)
  1. MYALEPT [Suspect]
     Active Substance: METRELEPTIN
     Indication: Congenital generalised lipodystrophy
     Route: 058

REACTIONS (5)
  - Paralysis [Unknown]
  - Sleep apnoea syndrome [Unknown]
  - Discouragement [Unknown]
  - Pain [Unknown]
  - Influenza [Unknown]

NARRATIVE: CASE EVENT DATE: 20250601
